FAERS Safety Report 11833036 (Version 1)
Quarter: 2015Q4

REPORT INFORMATION
  Report Type: Spontaneous
  Country: US (occurrence: US)
  Receive Date: 20151214
  Receipt Date: 20151214
  Transmission Date: 20160305
  Serious: Yes (Other)
  Sender: FDA-Public Use
  Company Number: US-BANPHARM-20154501

PATIENT
  Age: 35 Year
  Sex: Female

DRUGS (3)
  1. NAPROXEN UNKNOWN PRODUCT [Suspect]
     Active Substance: NAPROXEN
  2. FLUCONAZOLE. [Suspect]
     Active Substance: FLUCONAZOLE
  3. CIPROFOXACIN [Suspect]
     Active Substance: CIPROFLOXACIN

REACTIONS (1)
  - Drug eruption [Recovered/Resolved]
